FAERS Safety Report 14979299 (Version 2)
Quarter: 2019Q2

REPORT INFORMATION
  Report Type: Report from Study
  Country: US (occurrence: US)
  Receive Date: 20180606
  Receipt Date: 20190411
  Transmission Date: 20190711
  Serious: Yes (Other)
  Sender: FDA-Public Use
  Company Number: US-JNJFOC-20180604323

PATIENT
  Age: 54 Year
  Sex: Male

DRUGS (18)
  1. IRON [Concomitant]
     Active Substance: IRON
  2. ALLOPURINOL. [Concomitant]
     Active Substance: ALLOPURINOL
  3. VICODIN [Concomitant]
     Active Substance: ACETAMINOPHEN\HYDROCODONE BITARTRATE
  4. NASACORT [Concomitant]
     Active Substance: TRIAMCINOLONE ACETONIDE
  5. IMBRUVICA [Suspect]
     Active Substance: IBRUTINIB
     Indication: WALDENSTROM^S MACROGLOBULINAEMIA
     Route: 048
     Dates: start: 20180718
  6. ENTYVIO [Concomitant]
     Active Substance: VEDOLIZUMAB
  7. CALCIUM [Concomitant]
     Active Substance: CALCIUM
  8. VITIS VINIFERA (GRAPE) FLOWER EXTRACT [Concomitant]
     Active Substance: VITIS VINIFERA FLOWERING TOP
  9. IMBRUVICA [Suspect]
     Active Substance: IBRUTINIB
     Indication: WALDENSTROM^S MACROGLOBULINAEMIA
     Route: 048
     Dates: start: 20180502, end: 20180717
  10. CHOLESTYRAMINE. [Concomitant]
     Active Substance: CHOLESTYRAMINE
  11. CYCLOBENZAPRINE HCL [Concomitant]
     Active Substance: CYCLOBENZAPRINE HYDROCHLORIDE
  12. PREDNISONE. [Concomitant]
     Active Substance: PREDNISONE
  13. BIFIDOBACTERIUM LACTIS [Concomitant]
     Active Substance: BIFIDOBACTERIUM ANIMALIS LACTIS
  14. IMBRUVICA [Suspect]
     Active Substance: IBRUTINIB
     Indication: WALDENSTROM^S MACROGLOBULINAEMIA
     Route: 048
     Dates: start: 20170919, end: 20180501
  15. IMBRUVICA [Suspect]
     Active Substance: IBRUTINIB
     Indication: WALDENSTROM^S MACROGLOBULINAEMIA
     Route: 048
     Dates: start: 201805
  16. VITAMIN B12 [Concomitant]
     Active Substance: CYANOCOBALAMIN
  17. LAMOTRIGINE. [Concomitant]
     Active Substance: LAMOTRIGINE
  18. CENTRUM SILVER +50 [Concomitant]

REACTIONS (4)
  - Gastrointestinal haemorrhage [Unknown]
  - Incorrect dose administered [Unknown]
  - Off label use [Unknown]
  - Crohn^s disease [Unknown]

NARRATIVE: CASE EVENT DATE: 20180502
